FAERS Safety Report 7259602-X (Version None)
Quarter: 2011Q1

REPORT INFORMATION
  Report Type: 
  Country: None (occurrence: None)
  Receive Date: 20110130
  Receipt Date: 20101007
  Transmission Date: 20110831
  Serious: No
  Sender: FDA-Public Use
  Company Number: US-ABBOTT-10P-163-0618352-00

PATIENT
  Sex: Female

DRUGS (15)
  1. SYNTHROID [Concomitant]
     Indication: PRODUCT USED FOR UNKNOWN INDICATION
  2. ZOCOR [Concomitant]
     Indication: PRODUCT USED FOR UNKNOWN INDICATION
  3. HUMIRA [Suspect]
     Indication: PSORIATIC ARTHROPATHY
     Route: 058
  4. CALCIUM [Concomitant]
     Indication: PRODUCT USED FOR UNKNOWN INDICATION
  5. HUMIRA [Suspect]
     Indication: PSORIASIS
     Route: 058
  6. CLOBETASOL [Concomitant]
     Indication: PSORIASIS
     Route: 061
  7. VITAMIN D [Concomitant]
     Indication: PRODUCT USED FOR UNKNOWN INDICATION
  8. HUMIRA [Suspect]
     Indication: PSORIASIS
     Route: 058
  9. HUMIRA [Suspect]
     Indication: PSORIATIC ARTHROPATHY
  10. METFORMIN [Concomitant]
     Indication: PRODUCT USED FOR UNKNOWN INDICATION
  11. ZYRTEC [Concomitant]
     Indication: PRODUCT USED FOR UNKNOWN INDICATION
  12. HUMIRA [Suspect]
     Route: 058
  13. PRILOSEC [Concomitant]
     Indication: PRODUCT USED FOR UNKNOWN INDICATION
  14. HUMIRA [Suspect]
     Route: 058
  15. DOVANEX [Concomitant]
     Indication: PSORIASIS
     Route: 061

REACTIONS (4)
  - INJECTION SITE PAIN [None]
  - FUNGAL INFECTION [None]
  - PRURITUS [None]
  - TINEA INFECTION [None]
